FAERS Safety Report 18418976 (Version 6)
Quarter: 2020Q4

REPORT INFORMATION
  Report Type: Spontaneous
  Country: US (occurrence: US)
  Receive Date: 20201023
  Receipt Date: 20201201
  Transmission Date: 20210114
  Serious: No
  Sender: FDA-Public Use
  Company Number: US-ELI_LILLY_AND_COMPANY-US202010009644

PATIENT
  Age: 70 Year
  Sex: Female
  Weight: 43.54 kg

DRUGS (4)
  1. TYVASO [Suspect]
     Active Substance: TREPROSTINIL
     Indication: PULMONARY ARTERIAL HYPERTENSION
     Dosage: 3-9 BREATHS, QID
     Route: 055
     Dates: start: 20200916
  2. REVATIO [Suspect]
     Active Substance: SILDENAFIL CITRATE
     Indication: PULMONARY HYPERTENSION
     Dosage: 40 MG, TID
     Route: 065
  3. TADALAFIL. [Suspect]
     Active Substance: TADALAFIL
     Indication: PULMONARY ARTERIAL HYPERTENSION
     Dosage: UNK UNK, UNKNOWN
     Route: 065
  4. TYVASO [Suspect]
     Active Substance: TREPROSTINIL
     Dosage: 6 BREATHS, UNKNOWN
     Route: 055

REACTIONS (12)
  - Constipation [Unknown]
  - Pulmonary hypertension [Unknown]
  - Onychomycosis [Unknown]
  - Dyspnoea [Unknown]
  - Gastrooesophageal reflux disease [Unknown]
  - Blood pressure increased [Unknown]
  - Back pain [Unknown]
  - Productive cough [Unknown]
  - Nausea [Unknown]
  - Wheezing [Unknown]
  - Chest discomfort [Recovering/Resolving]
  - Headache [Unknown]

NARRATIVE: CASE EVENT DATE: 202009
